FAERS Safety Report 16402032 (Version 1)
Quarter: 2019Q2

REPORT INFORMATION
  Report Type: Spontaneous
  Country: GB (occurrence: GB)
  Receive Date: 20190607
  Receipt Date: 20190607
  Transmission Date: 20190711
  Serious: Yes (Other)
  Sender: FDA-Public Use
  Company Number: GB-TEVA-2019-GB-1058960

PATIENT
  Age: 88 Year
  Sex: Female
  Weight: 72 kg

DRUGS (10)
  1. FLECAINIDE ACETATE. [Concomitant]
     Active Substance: FLECAINIDE ACETATE
     Dosage: 1 DOSAGE FORMS DAILY;
     Dates: start: 20181228
  2. CEFALEXIN [Concomitant]
     Active Substance: CEPHALEXIN
     Indication: URINARY TRACT INFECTION
     Dosage: 3 DOSAGE FORMS DAILY;
     Dates: start: 20190305, end: 20190312
  3. SERTRALINE [Concomitant]
     Active Substance: SERTRALINE HYDROCHLORIDE
     Dosage: 1 DOSAGE FORMS DAILY;
     Dates: start: 20181228
  4. BETAHISTINE [Concomitant]
     Active Substance: BETAHISTINE
     Dosage: 3 DOSAGE FORMS DAILY; MORNING, LUNCH
     Dates: start: 20181228
  5. TRIMETHOPRIM. [Suspect]
     Active Substance: TRIMETHOPRIM
     Dosage: 200 MILLIGRAM
     Dates: start: 20181228
  6. OLANZAPINE. [Concomitant]
     Active Substance: OLANZAPINE
     Dosage: 10 MILLIGRAM DAILY;
     Dates: start: 20181228
  7. PANTOPRAZOLE [Concomitant]
     Active Substance: PANTOPRAZOLE
     Dosage: 1 DOSAGE FORMS DAILY;
     Dates: start: 20181228
  8. MEMANTINE. [Concomitant]
     Active Substance: MEMANTINE
     Dosage: 15 MILLIGRAM DAILY; 1.5ML
     Dates: start: 20181228
  9. LEVOTHYROXINE. [Concomitant]
     Active Substance: LEVOTHYROXINE
     Dosage: 1 DOSAGE FORMS DAILY; EACH MORNING
     Dates: start: 20181228
  10. DERMOL [Concomitant]
     Active Substance: BENZALKONIUM CHLORIDE\CHLORHEXIDINE HYDROCHLORIDE\ISOPROPYL MYRISTATE\PARAFFIN
     Dosage: APPLY TO THE AFFECTED AREAS
     Dates: start: 20181228

REACTIONS (1)
  - Dizziness [Recovered/Resolved]
